FAERS Safety Report 6619163-2 (Version None)
Quarter: 2010Q1

REPORT INFORMATION
  Report Type: 
  Country: None (occurrence: None)
  Receive Date: 20100304
  Receipt Date: 20100304
  Transmission Date: 20100710
  Serious: Yes (Hospitalization, Disabling, Other)
  Sender: FDA-Public Use
  Company Number: None

PATIENT
  Age: 31 Year
  Sex: Female
  Weight: 65.7716 kg

DRUGS (1)
  1. MIRENA [Suspect]
     Indication: CONTRACEPTION
     Dates: start: 20060209, end: 20091210

REACTIONS (4)
  - DEVICE DISLOCATION [None]
  - FATIGUE [None]
  - HAEMORRHAGE [None]
  - SMEAR CERVIX ABNORMAL [None]
